FAERS Safety Report 4668162-9 (Version None)
Quarter: 2005Q2

REPORT INFORMATION
  Report Type: 
  Country: None (occurrence: None)
  Receive Date: 20050523
  Receipt Date: 20050111
  Transmission Date: 20051028
  Serious: Yes (Other)
  Sender: FDA-Public Use
  Company Number: PHEH2005US01317

PATIENT
  Age: 68 Year
  Sex: Male
  Weight: 75 kg

DRUGS (5)
  1. THALIDOMIDE [Concomitant]
  2. IMMUNE GLOBULIN INTRAVENOUS (HUMAN) [Concomitant]
     Dosage: UNK, DURING WINTER MONTHS
     Dates: start: 19990209
  3. EPOGEN [Concomitant]
  4. ZOMETA [Suspect]
     Indication: MULTIPLE MYELOMA
     Dosage: 4 MG, MONTLY
     Dates: start: 20011227, end: 20021001
  5. ZOMETA [Suspect]
     Dosage: UNK, EVERY 2 MONTHS
     Dates: start: 20021120, end: 20041028

REACTIONS (2)
  - BONE DISORDER [None]
  - ORAL SURGERY [None]
